FAERS Safety Report 23758906 (Version 1)
Quarter: 2024Q2

REPORT INFORMATION
  Report Type: Spontaneous
  Country: US (occurrence: None)
  Receive Date: 20240418
  Receipt Date: 20240418
  Transmission Date: 20240716
  Serious: No
  Sender: FDA-Public Use
  Company Number: US-ROCHE-3431639

PATIENT

DRUGS (2)
  1. AVASTIN [Suspect]
     Active Substance: BEVACIZUMAB
     Indication: Product used for unknown indication
     Route: 065
  2. AVASTIN [Suspect]
     Active Substance: BEVACIZUMAB
     Route: 065

REACTIONS (3)
  - Product dose omission in error [Unknown]
  - Product closure issue [Unknown]
  - No adverse event [Unknown]

NARRATIVE: CASE EVENT DATE: 20230918
